FAERS Safety Report 4283751-1 (Version None)
Quarter: 2004Q1

REPORT INFORMATION
  Report Type: 
  Country: None (occurrence: None)
  Receive Date: 20040130
  Receipt Date: 20040130
  Transmission Date: 20041129
  Serious: No
  Sender: FDA-Public Use
  Company Number: None

PATIENT
  Age: 42 Year
  Sex: Male
  Weight: 122.4712 kg

DRUGS (5)
  1. GEODON [Suspect]
     Indication: BIPOLAR DISORDER
     Dosage: 80MG X 1 MORNIN ORAL
     Route: 048
     Dates: start: 20021101, end: 20030201
  2. GEODON [Suspect]
     Indication: SCHIZOAFFECTIVE DISORDER
     Dosage: 80MG X 1 MORNIN ORAL
     Route: 048
     Dates: start: 20021101, end: 20030201
  3. GEODON [Suspect]
     Indication: BIPOLAR DISORDER
     Dosage: 80MG X 1 MORNIN ORAL
     Route: 048
     Dates: start: 20030501, end: 20030806
  4. GEODON [Suspect]
     Indication: SCHIZOAFFECTIVE DISORDER
     Dosage: 80MG X 1 MORNIN ORAL
     Route: 048
     Dates: start: 20030501, end: 20030806
  5. GEODON [Suspect]

REACTIONS (3)
  - FEELING ABNORMAL [None]
  - SYNCOPE [None]
  - TINNITUS [None]
